FAERS Safety Report 15588085 (Version 2)
Quarter: 2018Q4

REPORT INFORMATION
  Report Type: Spontaneous
  Country: RU (occurrence: RU)
  Receive Date: 20181105
  Receipt Date: 20181127
  Transmission Date: 20190205
  Serious: Yes (Death, Hospitalization)
  Sender: FDA-Public Use
  Company Number: RU-GE HEALTHCARE LIFE SCIENCES-2018CSU004487

PATIENT

DRUGS (1)
  1. OMNISCAN [Suspect]
     Active Substance: GADODIAMIDE
     Indication: PRODUCT USED FOR UNKNOWN INDICATION
     Dosage: 15 ML, SINGLE
     Route: 065
     Dates: start: 201810, end: 201810

REACTIONS (2)
  - Multiple organ dysfunction syndrome [Fatal]
  - Loss of consciousness [Not Recovered/Not Resolved]

NARRATIVE: CASE EVENT DATE: 201810
